FAERS Safety Report 6167846-3 (Version None)
Quarter: 2009Q2

REPORT INFORMATION
  Report Type: 
  Country: None (occurrence: None)
  Receive Date: 20090427
  Receipt Date: 20090421
  Transmission Date: 20091009
  Serious: Yes (Hospitalization)
  Sender: FDA-Public Use
  Company Number: JP-ELI_LILLY_AND_COMPANY-JP200904001568

PATIENT
  Sex: Female
  Weight: 35 kg

DRUGS (6)
  1. GEMZAR [Suspect]
     Indication: BILE DUCT CANCER STAGE III
     Dosage: 1000 MG, OTHER
     Route: 042
     Dates: start: 20080922, end: 20090319
  2. PLAVIX [Concomitant]
     Indication: CEREBROVASCULAR ACCIDENT PROPHYLAXIS
     Dosage: 50 MG, DAILY (1/D)
     Route: 048
     Dates: start: 20090307, end: 20090327
  3. CONIEL [Concomitant]
     Indication: HYPERTENSION
     Dosage: 4 MG, 2/D
     Route: 048
     Dates: start: 20060217
  4. FLUITRAN [Concomitant]
     Indication: HYPERTENSION
     Dosage: 10 MG, DAILY (1/D)
     Route: 048
     Dates: start: 20080829
  5. ULGUT [Concomitant]
     Indication: PROPHYLAXIS AGAINST GASTROINTESTINAL ULCER
     Dosage: 200 MG, 2/D
     Route: 048
     Dates: start: 20020901
  6. URSO 250 [Concomitant]
     Indication: PROPHYLAXIS
     Dosage: 200 MG, 3/D
     Route: 048
     Dates: start: 20080927

REACTIONS (3)
  - CONSTIPATION [None]
  - INTERSTITIAL LUNG DISEASE [None]
  - JAUNDICE CHOLESTATIC [None]
